FAERS Safety Report 10084148 (Version 1)
Quarter: 2014Q2

REPORT INFORMATION
  Report Type: Report from Study
  Country: AU (occurrence: AU)
  Receive Date: 20140417
  Receipt Date: 20140417
  Transmission Date: 20141212
  Serious: Yes (Other)
  Sender: FDA-Public Use
  Company Number: AU-SA-2014SA042460

PATIENT
  Age: 65 Year
  Sex: Female

DRUGS (1)
  1. LANTUS [Suspect]
     Indication: PRODUCT USED FOR UNKNOWN INDICATION
     Route: 065
     Dates: start: 20070201

REACTIONS (3)
  - Fall [Unknown]
  - Rib fracture [Not Recovered/Not Resolved]
  - Abscess [Not Recovered/Not Resolved]
